FAERS Safety Report 8117873-1 (Version None)
Quarter: 2012Q1

REPORT INFORMATION
  Report Type: 
  Country: None (occurrence: None)
  Receive Date: 20120207
  Receipt Date: 20120123
  Transmission Date: 20120608
  Serious: Yes (Other)
  Sender: FDA-Public Use
  Company Number: JP-JNJFOC-20120202177

PATIENT
  Sex: Female

DRUGS (7)
  1. ZYRTEC [Suspect]
     Route: 048
  2. ONON [Concomitant]
     Route: 048
     Dates: start: 20111216
  3. FLOMOX [Concomitant]
     Route: 048
  4. ASVERIN [Concomitant]
     Route: 048
     Dates: start: 20111216
  5. MEPTIN [Concomitant]
     Route: 048
  6. ZYRTEC [Suspect]
     Indication: RHINITIS ALLERGIC
     Route: 048
     Dates: start: 20111216, end: 20111223
  7. MUCODYNE [Concomitant]
     Route: 048
     Dates: start: 20111216

REACTIONS (4)
  - AGITATION [None]
  - RESTLESSNESS [None]
  - COMPULSIONS [None]
  - CRYING [None]
